FAERS Safety Report 21755000 (Version 2)
Quarter: 2022Q4

REPORT INFORMATION
  Report Type: Spontaneous
  Country: US (occurrence: US)
  Receive Date: 20221220
  Receipt Date: 20221220
  Transmission Date: 20230113
  Serious: No
  Sender: FDA-Public Use
  Company Number: US-RECKITT BENCKISER HEALTHCARE INT LIMITED-RB-080610-2022

PATIENT

DRUGS (2)
  1. DELSYM [Suspect]
     Active Substance: DEXTROMETHORPHAN
     Indication: Pulmonary congestion
     Dosage: 1 DOSAGE FORM, QD
     Route: 048
     Dates: start: 20211224, end: 20211225
  2. DELSYM [Suspect]
     Active Substance: DEXTROMETHORPHAN
     Indication: Sinusitis

REACTIONS (1)
  - Drug ineffective [Recovered/Resolved]
